FAERS Safety Report 13615012 (Version 1)
Quarter: 2017Q2

REPORT INFORMATION
  Report Type: Spontaneous
  Country: None (occurrence: US)
  Receive Date: 20170605
  Receipt Date: 20170605
  Transmission Date: 20170830
  Serious: No
  Sender: FDA-Public Use
  Company Number: None

PATIENT
  Age: 63 Year
  Sex: Female

DRUGS (1)
  1. IBRANCE [Suspect]
     Active Substance: PALBOCICLIB
     Indication: BREAST CANCER
     Dosage: 125MG DAILY 21 DAYS ON 7 DAYS OFF BY MOUTH
     Route: 048
     Dates: start: 20161220

REACTIONS (4)
  - Jaw disorder [None]
  - Gingival pain [None]
  - Swelling face [None]
  - Stomatitis [None]

NARRATIVE: CASE EVENT DATE: 20170601
